FAERS Safety Report 5781679-9 (Version None)
Quarter: 2008Q2

REPORT INFORMATION
  Report Type: 
  Country: None (occurrence: None)
  Receive Date: 20080623
  Receipt Date: 20070423
  Transmission Date: 20081010
  Serious: No
  Sender: FDA-Public Use
  Company Number: US-ASTRAZENECA-2007UW07957

PATIENT
  Age: 75 Year
  Sex: Female
  Weight: 59.4 kg

DRUGS (6)
  1. RHINOCORT [Suspect]
     Indication: SEASONAL ALLERGY
     Route: 045
  2. HTCZ [Concomitant]
  3. GLIPIZIDE [Concomitant]
  4. M.V.I. [Concomitant]
  5. CALCIUM [Concomitant]
  6. ZETIA [Concomitant]

REACTIONS (3)
  - COUGH [None]
  - FATIGUE [None]
  - NASAL DISCOMFORT [None]
